FAERS Safety Report 7737230-7 (Version None)
Quarter: 2011Q3

REPORT INFORMATION
  Report Type: 
  Country: None (occurrence: None)
  Receive Date: 20110902
  Receipt Date: 20110824
  Transmission Date: 20111222
  Serious: Yes (Life-Threatening, Hospitalization)
  Sender: FDA-Public Use
  Company Number: 2011MA012555

PATIENT
  Age: 84 Year
  Sex: Male

DRUGS (1)
  1. RAMIPRIL [Suspect]
     Indication: CARDIAC DISORDER

REACTIONS (5)
  - STRIDOR [None]
  - EPIGLOTTIC OEDEMA [None]
  - ANGIOEDEMA [None]
  - SWOLLEN TONGUE [None]
  - SWELLING [None]
